FAERS Safety Report 5797069-9 (Version None)
Quarter: 2008Q2

REPORT INFORMATION
  Report Type: 
  Country: None (occurrence: None)
  Receive Date: 20080618
  Receipt Date: 20071008
  Transmission Date: 20081010
  Serious: Yes (Other)
  Sender: FDA-Public Use
  Company Number: 200715769US

PATIENT
  Age: 57 Year
  Sex: Female
  Weight: 79 kg

DRUGS (7)
  1. LANTUS [Suspect]
     Indication: TYPE 2 DIABETES MELLITUS
     Dosage: 40 U QD
     Dates: start: 20070101
  2. OPTICLIK [Suspect]
     Indication: TYPE 2 DIABETES MELLITUS
     Dates: start: 20070101
  3. CLOPIDOGREL (PLAVIX /01220701/) [Concomitant]
  4. IMDUR [Concomitant]
  5. ADENOSINE (TRICOR /00090101/) [Concomitant]
  6. ACETYLSALICYLIC ACID SRT [Concomitant]
  7. VALDECOXIB (VEXTRA) [Concomitant]

REACTIONS (3)
  - CONVULSION [None]
  - HYPOGLYCAEMIC UNCONSCIOUSNESS [None]
  - INJECTION SITE HAEMORRHAGE [None]
